FAERS Safety Report 25150767 (Version 1)
Quarter: 2025Q2

REPORT INFORMATION
  Report Type: Spontaneous
  Country: US (occurrence: None)
  Receive Date: 20250401
  Receipt Date: 20250401
  Transmission Date: 20250716
  Serious: Yes (Other)
  Sender: FDA-CTU
  Company Number: None

PATIENT
  Age: 53 Year
  Sex: Male

DRUGS (1)
  1. SEMAGLUTIDE [Suspect]
     Active Substance: SEMAGLUTIDE
     Indication: Obesity
     Route: 058
     Dates: start: 20250324, end: 20250324

REACTIONS (8)
  - Nausea [None]
  - Vomiting [None]
  - Wrong technique in product usage process [None]
  - Product use in unapproved indication [None]
  - Suspected product tampering [None]
  - Product storage error [None]
  - Product preparation error [None]
  - Physical product label issue [None]

NARRATIVE: CASE EVENT DATE: 20250325
